FAERS Safety Report 4767826-6 (Version None)
Quarter: 2005Q3

REPORT INFORMATION
  Report Type: 
  Country: None (occurrence: None)
  Receive Date: 20050912
  Receipt Date: 20050831
  Transmission Date: 20060218
  Serious: Yes (Other)
  Sender: FDA-Public Use
  Company Number: 2005122203

PATIENT
  Age: 72 Year
  Sex: Female

DRUGS (1)
  1. PIROXICAM [Suspect]
     Indication: ILL-DEFINED DISORDER

REACTIONS (4)
  - ABDOMINAL ADHESIONS [None]
  - ABDOMINAL HERNIA [None]
  - GASTRIC ULCER PERFORATION [None]
  - INTESTINAL OBSTRUCTION [None]
